FAERS Safety Report 9000665 (Version 2)
Quarter: 2013Q2

REPORT INFORMATION
  Report Type: Spontaneous
  Country: GB (occurrence: None)
  Receive Date: 20121226
  Receipt Date: 20130610
  Transmission Date: 20140414
  Serious: Yes (Hospitalization)
  Sender: FDA-Public Use
  Company Number: DSA_61543_2012

PATIENT
  Age: 74 Year
  Sex: Male

DRUGS (5)
  1. 5-FU /00098801/ (5-FU-FLUORORACIL) (NOT SPECIFIED) [Suspect]
     Indication: COLORECTAL CANCER
     Route: 040
     Dates: start: 20120829, end: 20120829
  2. AFLIBERCEPT [Suspect]
     Indication: COLORECTAL CANCER
     Dosage: 4 MG/M2; EVERY OTHER WEEK INTRAVENOS (NOT OTHERWISE SPECIFIED)
     Route: 040
     Dates: start: 20120829, end: 20120829
  3. IRINOTECAN (IRINOTECAN) [Suspect]
     Indication: COLORECTAL CANCER
     Dosage: 340 MG; EVERY OTHER WEEK INTRAVENOUS (NOT OTHERWISE SPECIFIED)
     Route: 042
     Dates: start: 20120829, end: 20120829
  4. LEUCOVORIN /00566701/ (LEUCOVORIN0FOLINIC ACID) [Suspect]
     Indication: COLORECTAL CANCER
     Dosage: 775 MG; EVERY OTHER WEEK INTRAVENOUS (NOT OTHERWISE SPECIFIED)
     Route: 042
     Dates: start: 20120829, end: 20120829
  5. ANTIBIOTICS [Concomitant]

REACTIONS (1)
  - Sepsis [None]
